FAERS Safety Report 5159517-7 (Version None)
Quarter: 2006Q4

REPORT INFORMATION
  Report Type: 
  Country: None (occurrence: None)
  Receive Date: 20061117
  Receipt Date: 20061104
  Transmission Date: 20070319
  Serious: Yes (Hospitalization, Other)
  Sender: FDA-Public Use
  Company Number: 2006111160

PATIENT

DRUGS (1)
  1. CHANTIX [Suspect]
     Indication: SMOKING CESSATION THERAPY
     Dosage: 2 MG (1 MG, 2 IN 1 D)
     Dates: start: 20060815, end: 20060906

REACTIONS (3)
  - ANAEMIA [None]
  - GASTROINTESTINAL ARTERIOVENOUS MALFORMATION [None]
  - GASTROINTESTINAL HAEMORRHAGE [None]
